FAERS Safety Report 4913663-9 (Version None)
Quarter: 2006Q1

REPORT INFORMATION
  Report Type: 
  Country: None (occurrence: None)
  Receive Date: 20060216
  Receipt Date: 20060206
  Transmission Date: 20060701
  Serious: Yes (Hospitalization)
  Sender: FDA-Public Use
  Company Number: JP-JNJFOC-20060201521

PATIENT
  Age: 40 Year
  Sex: Female

DRUGS (5)
  1. RISPERDAL [Suspect]
     Route: 048
     Dates: start: 20060131, end: 20060131
  2. LORAZEPAM [Concomitant]
     Route: 048
  3. DIAZEPAM [Concomitant]
     Route: 048
  4. PAROXETINE HCL [Concomitant]
     Route: 048
  5. ZOPICLONE [Concomitant]
     Route: 048

REACTIONS (1)
  - RESPIRATION ABNORMAL [None]
